FAERS Safety Report 12713385 (Version 6)
Quarter: 2017Q4

REPORT INFORMATION
  Report Type: Report from Study
  Country: GB (occurrence: GB)
  Receive Date: 20160903
  Receipt Date: 20171212
  Transmission Date: 20180320
  Serious: Yes (Death, Hospitalization)
  Sender: FDA-Public Use
  Company Number: GB-AMGEN-GBRNI2016116902

PATIENT
  Age: 76 Year
  Sex: Female

DRUGS (1)
  1. ETANERCEPT [Suspect]
     Active Substance: ETANERCEPT
     Indication: RHEUMATOID ARTHRITIS
     Dosage: 50 MG, UNK
     Route: 058
     Dates: start: 20040108, end: 20131108

REACTIONS (8)
  - Chronic kidney disease [Fatal]
  - Urinary tract infection [Fatal]
  - Femoral neck fracture [Fatal]
  - Pulmonary fibrosis [Fatal]
  - Cardiac failure congestive [Fatal]
  - Respiratory tract infection [Fatal]
  - Renal failure [Fatal]
  - Renal impairment [Fatal]

NARRATIVE: CASE EVENT DATE: 20150928
